FAERS Safety Report 7814381-X (Version None)
Quarter: 2011Q4

REPORT INFORMATION
  Report Type: 
  Country: None (occurrence: None)
  Receive Date: 20111014
  Receipt Date: 20111003
  Transmission Date: 20120403
  Serious: Yes (Other)
  Sender: FDA-Public Use
  Company Number: PHEH2011US05774

PATIENT
  Sex: Female

DRUGS (1)
  1. DIOVAN [Suspect]
     Dosage: 325 MG, UNK

REACTIONS (5)
  - BOWEL MOVEMENT IRREGULARITY [None]
  - MUSCLE SPASMS [None]
  - DIARRHOEA [None]
  - CEREBROVASCULAR ACCIDENT [None]
  - NONSPECIFIC REACTION [None]
